FAERS Safety Report 13358254 (Version 1)
Quarter: 2017Q1

REPORT INFORMATION
  Report Type: Spontaneous
  Country: US (occurrence: US)
  Receive Date: 20170321
  Receipt Date: 20170321
  Transmission Date: 20170429
  Serious: No
  Sender: FDA-Public Use
  Company Number: None

PATIENT
  Age: 23 Year
  Sex: Female
  Weight: 45 kg

DRUGS (5)
  1. HERBAL TEAS [Concomitant]
     Active Substance: HERBALS
  2. NICOTINE TRANSDERMAL SYSTEM [Suspect]
     Active Substance: NICOTINE
     Indication: SMOKING CESSATION THERAPY
     Dosage: QUANTITY:1 PATCH(ES);?
     Route: 062
     Dates: start: 20170304, end: 20170320
  3. ONE A DAY WOMENS VITAMINS [Concomitant]
  4. TEA [Concomitant]
     Active Substance: TEA LEAF
  5. CHAMOMILE [Concomitant]
     Active Substance: CHAMOMILE

REACTIONS (14)
  - Bone pain [None]
  - Asthenia [None]
  - Drug ineffective [None]
  - Pain in extremity [None]
  - Arthralgia [None]
  - Palpitations [None]
  - Back pain [None]
  - Pain [None]
  - Malaise [None]
  - Chest discomfort [None]
  - Fatigue [None]
  - Dyspnoea [None]
  - Fear of death [None]
  - Nasal congestion [None]

NARRATIVE: CASE EVENT DATE: 20170319
